FAERS Safety Report 4556991-1 (Version None)
Quarter: 2005Q1

REPORT INFORMATION
  Report Type: 
  Country: None (occurrence: None)
  Receive Date: 20050118
  Receipt Date: 20050111
  Transmission Date: 20050727
  Serious: Yes (Other)
  Sender: FDA-Public Use
  Company Number: 200510076GDS

PATIENT
  Age: 73 Year
  Sex: Female

DRUGS (10)
  1. MOXIFLOXACIN [Suspect]
     Dosage: 400 MG, TOTAL DAILY, ORAL
     Route: 048
  2. WARFARIN SODIUM [Suspect]
     Indication: ATRIAL FIBRILLATION
     Dosage: 2.5 MG , TOTAL DAILY
  3. SPIRONOLACTONE [Concomitant]
  4. CLONAZEPAM [Concomitant]
  5. LORAZEPAM [Concomitant]
  6. FUROSEMIDE [Concomitant]
  7. PROCHLORPERAZINE [Concomitant]
  8. CITALOPRAM [Concomitant]
  9. ATENOLOL [Concomitant]
  10. OMEPRAZOLE [Concomitant]

REACTIONS (2)
  - DRUG INTERACTION [None]
  - INTERNATIONAL NORMALISED RATIO INCREASED [None]
